FAERS Safety Report 7111020-0 (Version None)
Quarter: 2010Q4

REPORT INFORMATION
  Report Type: 
  Country: None (occurrence: None)
  Receive Date: 20101118
  Receipt Date: 20101109
  Transmission Date: 20110411
  Serious: Yes (Hospitalization, Disabling)
  Sender: FDA-Public Use
  Company Number: US-MERCK-1007USA03940

PATIENT
  Age: 73 Year
  Sex: Female

DRUGS (3)
  1. FOSAMAX PLUS D [Suspect]
     Indication: OSTEOPOROSIS
     Route: 048
     Dates: start: 19950101, end: 20080601
  2. FOSAMAX [Suspect]
     Indication: OSTEOPOROSIS
     Route: 048
     Dates: start: 20001101, end: 20050901
  3. FOSAMAX [Suspect]
     Route: 048
     Dates: start: 20000401, end: 20001001

REACTIONS (6)
  - BACK DISORDER [None]
  - FALL [None]
  - FEMUR FRACTURE [None]
  - HEART INJURY [None]
  - MUSCULOSKELETAL DISCOMFORT [None]
  - TRICUSPID VALVE DISEASE [None]
